FAERS Safety Report 7927455 (Version 3)
Quarter: 2013Q1

REPORT INFORMATION
  Report Type: Report from Study
  Country: FR (occurrence: FR)
  Receive Date: 20110503
  Receipt Date: 20130313
  Transmission Date: 20140127
  Serious: Yes (Other)
  Sender: FDA-Public Use
  Company Number: FR-JNJFOC-20110409678

PATIENT
  Age: 77 Year
  Sex: Male
  Weight: 63 kg

DRUGS (3)
  1. ABIRATERONE [Suspect]
     Route: 048
  2. ABIRATERONE [Suspect]
     Indication: PROSTATE CANCER
     Route: 048
     Dates: start: 20110224
  3. PREDNISOLONE [Concomitant]
     Indication: PROSTATE CANCER
     Route: 048
     Dates: start: 20110224

REACTIONS (1)
  - Neoplasm progression [Not Recovered/Not Resolved]
